FAERS Safety Report 9902339 (Version 2)
Quarter: 2014Q1

REPORT INFORMATION
  Report Type: Spontaneous
  Country: US (occurrence: US)
  Receive Date: 20140217
  Receipt Date: 20140217
  Transmission Date: 20141002
  Serious: No
  Sender: FDA-Public Use
  Company Number: US-GILEAD-2011-0043581

PATIENT
  Sex: Male

DRUGS (7)
  1. LETAIRIS [Suspect]
     Indication: PULMONARY HYPERTENSION
     Route: 048
     Dates: start: 20110415
  2. LETAIRIS [Suspect]
     Indication: UNEVALUABLE EVENT
  3. TYVASO [Concomitant]
  4. ADCIRCA [Concomitant]
  5. MARINOL                            /00003301/ [Concomitant]
  6. MEGACE [Concomitant]
  7. CANNABIS [Concomitant]

REACTIONS (2)
  - Weight decreased [Not Recovered/Not Resolved]
  - Decreased appetite [Not Recovered/Not Resolved]
